FAERS Safety Report 19410111 (Version 1)
Quarter: 2021Q2

REPORT INFORMATION
  Report Type: Spontaneous
  Country: US (occurrence: US)
  Receive Date: 20210614
  Receipt Date: 20210614
  Transmission Date: 20210717
  Serious: No
  Sender: FDA-Public Use
  Company Number: US-NEUROCRINE BIOSCIENCES INC.-2021NBI02810

PATIENT

DRUGS (2)
  1. ONGENTYS [Suspect]
     Active Substance: OPICAPONE
     Indication: PARKINSON^S DISEASE
     Dosage: 25 MILLIGRAM
     Route: 048
     Dates: start: 20210525, end: 20210531
  2. LEVODOPA [Concomitant]
     Active Substance: LEVODOPA
     Dosage: 3000 MILLIGRAM

REACTIONS (3)
  - Irritability [Unknown]
  - Anxiety [Unknown]
  - Insomnia [Recovered/Resolved]

NARRATIVE: CASE EVENT DATE: 202105
